FAERS Safety Report 8956770 (Version 1)
Quarter: 2012Q4

REPORT INFORMATION
  Report Type: 
  Country: US (occurrence: US)
  Receive Date: 20121210
  Receipt Date: 20121210
  Transmission Date: 20130627
  Serious: Yes (Other)
  Sender: FDA-Public Use
  Company Number: PHHY2012US112899

PATIENT
  Age: 80 Year
  Sex: Male

DRUGS (3)
  1. BUFFERIN EXTRA STRENGTH [Suspect]
     Indication: ANTICOAGULANT THERAPY
     Dosage: 0.5 DF, (half tablet daily)
     Route: 048
     Dates: end: 2012
  2. BUFFERIN EXTRA STRENGTH [Suspect]
     Indication: ARTHRITIS
  3. COUMADIN [Suspect]

REACTIONS (2)
  - Cerebrovascular accident [Recovered/Resolved]
  - Wrong technique in drug usage process [Unknown]
